FAERS Safety Report 9330500 (Version 2)
Quarter: 2013Q2

REPORT INFORMATION
  Report Type: Spontaneous
  Country: US (occurrence: US)
  Receive Date: 20130605
  Receipt Date: 20130624
  Transmission Date: 20140414
  Serious: Yes (Other)
  Sender: FDA-Public Use
  Company Number: US-ROCHE-1230854

PATIENT
  Sex: Male

DRUGS (4)
  1. PEGASYS [Suspect]
     Indication: CHRONIC HEPATITIS C
     Route: 058
     Dates: start: 20120531, end: 20130425
  2. RIBAVIRIN [Suspect]
     Indication: CHRONIC HEPATITIS C
     Route: 048
     Dates: start: 20120531, end: 20130425
  3. TELAPREVIR [Suspect]
     Indication: CHRONIC HEPATITIS C
     Route: 065
     Dates: start: 20120531, end: 20120823
  4. PROZAC [Concomitant]

REACTIONS (15)
  - Mental disorder [Recovering/Resolving]
  - Anger [Recovering/Resolving]
  - Homicidal ideation [Recovering/Resolving]
  - Irritability [Recovering/Resolving]
  - Arthralgia [Unknown]
  - Feeling abnormal [Unknown]
  - No therapeutic response [Unknown]
  - Chronic obstructive pulmonary disease [Unknown]
  - Bronchitis [Unknown]
  - Bone pain [Unknown]
  - Insomnia [Unknown]
  - Dry eye [Unknown]
  - Headache [Unknown]
  - Asthenia [Unknown]
  - Blood disorder [Unknown]
